FAERS Safety Report 11982757 (Version 1)
Quarter: 2016Q1

REPORT INFORMATION
  Report Type: Spontaneous
  Country: US (occurrence: US)
  Receive Date: 20160201
  Receipt Date: 20160201
  Transmission Date: 20160526
  Serious: No
  Sender: FDA-Public Use
  Company Number: US-BAYER-2016-019235

PATIENT
  Age: 83 Year
  Sex: Female
  Weight: 81.18 kg

DRUGS (1)
  1. LOTRIMIN ULTRA ANTIFUNGAL [Suspect]
     Active Substance: BUTENAFINE HYDROCHLORIDE
     Indication: FUNGAL INFECTION
     Dosage: 1 DF, BID
     Route: 061
     Dates: start: 20160121

REACTIONS (1)
  - Off label use [None]

NARRATIVE: CASE EVENT DATE: 20160121
